FAERS Safety Report 4375369-7 (Version None)
Quarter: 2004Q2

REPORT INFORMATION
  Report Type: 
  Country: None (occurrence: None)
  Receive Date: 20040602
  Receipt Date: 20040517
  Transmission Date: 20050107
  Serious: No
  Sender: FDA-Public Use
  Company Number: 600113

PATIENT
  Age: 54 Year
  Sex: Female

DRUGS (1)
  1. TISSEEL VH KIT [Suspect]
     Indication: SURGICAL HAEMOSTASIS

REACTIONS (4)
  - AORTIC VALVE DISEASE [None]
  - MECHANICAL COMPLICATION OF IMPLANT [None]
  - MIGRATION OF IMPLANT [None]
  - PROCEDURAL COMPLICATION [None]
